FAERS Safety Report 13402775 (Version 2)
Quarter: 2017Q2

REPORT INFORMATION
  Report Type: Not Available
  Country: US (occurrence: US)
  Receive Date: 20170404
  Receipt Date: 20170417
  Transmission Date: 20170830
  Serious: No
  Sender: FDA-Public Use
  Company Number: US-ACORDA-ACO_135848_2017

PATIENT
  Sex: Female

DRUGS (2)
  1. TYSABRI [Concomitant]
     Active Substance: NATALIZUMAB
     Indication: PRODUCT USED FOR UNKNOWN INDICATION
     Dosage: UNK
     Route: 065
     Dates: start: 201512
  2. AMPYRA [Suspect]
     Active Substance: DALFAMPRIDINE
     Indication: MULTIPLE SCLEROSIS
     Dosage: 10 MG, BID
     Route: 048
     Dates: start: 20160920

REACTIONS (1)
  - No adverse event [Unknown]
